FAERS Safety Report 9352479 (Version 1)
Quarter: 2013Q2

REPORT INFORMATION
  Report Type: Spontaneous
  Country: US (occurrence: US)
  Receive Date: 20130617
  Receipt Date: 20130617
  Transmission Date: 20140414
  Serious: Yes (Hospitalization, Other)
  Sender: FDA-Public Use
  Company Number: US-RB-053652-13

PATIENT
  Age: 36 Year
  Sex: Male

DRUGS (3)
  1. SUBOXONE FILM [Suspect]
     Indication: DRUG DEPENDENCE
     Dosage: SUBOXONE FILM
     Route: 060
     Dates: start: 20130501, end: 20130502
  2. METHADONE [Suspect]
     Route: 065
     Dates: start: 2009
  3. METHADONE [Suspect]
     Indication: DEPENDENCE
     Dosage: DECREASING DOSE FROM 120 MG DAILY TO 40 MG DAILY
     Route: 065

REACTIONS (5)
  - Off label use [Recovered/Resolved]
  - Hyperhidrosis [Recovered/Resolved]
  - Dyspnoea [Unknown]
  - Tremor [Unknown]
  - Pancreatitis [Unknown]
